FAERS Safety Report 20561418 (Version 1)
Quarter: 2022Q1

REPORT INFORMATION
  Report Type: Spontaneous
  Country: DE (occurrence: DE)
  Receive Date: 20220307
  Receipt Date: 20220307
  Transmission Date: 20220423
  Serious: Yes (Other)
  Sender: FDA-Public Use
  Company Number: DE-NOVARTISPH-NVSC2019DE039265

PATIENT
  Age: 68 Year
  Sex: Female

DRUGS (1)
  1. SULFAMETHOXAZOLE\TRIMETHOPRIM [Suspect]
     Active Substance: SULFAMETHOXAZOLE\TRIMETHOPRIM
     Indication: Cystitis noninfective
     Dosage: 1 DF, BID
     Route: 065
     Dates: start: 20191112

REACTIONS (3)
  - Blindness unilateral [Unknown]
  - Abdominal discomfort [Unknown]
  - Abdominal pain [Unknown]
